APPROVED DRUG PRODUCT: ENTECAVIR
Active Ingredient: ENTECAVIR
Strength: 0.5MG
Dosage Form/Route: TABLET;ORAL
Application: A206294 | Product #001
Applicant: CHARTWELL RX SCIENCES LLC
Approved: Nov 23, 2016 | RLD: No | RS: No | Type: DISCN